FAERS Safety Report 8133661-4 (Version None)
Quarter: 2012Q1

REPORT INFORMATION
  Report Type: 
  Country: None (occurrence: None)
  Receive Date: 20120213
  Receipt Date: 20120207
  Transmission Date: 20120608
  Serious: Yes (Hospitalization)
  Sender: FDA-Public Use
  Company Number: IN-ROXANE LABORATORIES, INC.-2012-RO-00609RO

PATIENT
  Age: 73 Year
  Sex: Male

DRUGS (8)
  1. ASPIRIN [Suspect]
  2. LOSARTAN POTASSIUM [Suspect]
  3. ATORVASTATIN [Suspect]
  4. HYDROCHLOROTHIAZIDE [Suspect]
  5. IPRATROPIUM AND SALBUTAMOL [Suspect]
     Route: 055
  6. AZATHIOPRINE [Suspect]
     Indication: CORNEAL GRAFT REJECTION
     Dosage: 50 MG
  7. SALMETEROL PLUS FLUTICASONE [Suspect]
     Route: 055
  8. PREDNISONE TAB [Suspect]
     Indication: CORNEAL GRAFT REJECTION
     Dosage: 40 MG

REACTIONS (2)
  - CHOLESTASIS [None]
  - HEPATITIS [None]
